FAERS Safety Report 14934848 (Version 1)
Quarter: 2018Q2

REPORT INFORMATION
  Report Type: Spontaneous
  Country: US (occurrence: US)
  Receive Date: 20180506
  Receipt Date: 20180506
  Transmission Date: 20180711
  Serious: Yes (Other)
  Sender: FDA-Public Use
  Company Number: None

PATIENT
  Age: 57 Year
  Sex: Female
  Weight: 71.1 kg

DRUGS (2)
  1. PIROXICAM. [Suspect]
     Active Substance: PIROXICAM
     Indication: PLANTAR FASCIITIS
     Dosage: ?          QUANTITY:1 CAPSULE(S);?
     Route: 048
     Dates: start: 20180419, end: 20180502
  2. PIROXICAM. [Suspect]
     Active Substance: PIROXICAM
     Indication: PAIN IN EXTREMITY
     Dosage: ?          QUANTITY:1 CAPSULE(S);?
     Route: 048
     Dates: start: 20180419, end: 20180502

REACTIONS (7)
  - Burning sensation [None]
  - Swelling face [None]
  - Hypersensitivity [None]
  - Blister [None]
  - Erythema [None]
  - Eyelid oedema [None]
  - Sunburn [None]

NARRATIVE: CASE EVENT DATE: 20180501
